FAERS Safety Report 14836713 (Version 2)
Quarter: 2018Q2

REPORT INFORMATION
  Report Type: Report from Study
  Country: None (occurrence: US)
  Receive Date: 20180502
  Receipt Date: 20180510
  Transmission Date: 20180711
  Serious: Yes (Other)
  Sender: FDA-Public Use
  Company Number: US-ABBVIE-18K-163-2340157-00

PATIENT
  Age: 43 Year
  Sex: Female
  Weight: 95.34 kg

DRUGS (1)
  1. HUMIRA [Suspect]
     Active Substance: ADALIMUMAB
     Indication: PSORIASIS
     Route: 058
     Dates: start: 2016, end: 201804

REACTIONS (4)
  - Psoriasis [Recovering/Resolving]
  - Middle ear effusion [Unknown]
  - Drug ineffective [Not Recovered/Not Resolved]
  - Eustachian tube disorder [Recovering/Resolving]

NARRATIVE: CASE EVENT DATE: 2018
